FAERS Safety Report 4295448-2 (Version None)
Quarter: 2004Q1

REPORT INFORMATION
  Report Type: 
  Country: None (occurrence: None)
  Receive Date: 20040216
  Receipt Date: 20040206
  Transmission Date: 20041129
  Serious: Yes (Hospitalization)
  Sender: FDA-Public Use
  Company Number: FR-ROCHE-358310

PATIENT
  Age: 14 Year
  Sex: Female
  Weight: 58 kg

DRUGS (5)
  1. ROACCUTANE [Suspect]
     Indication: ACNE
     Route: 048
     Dates: start: 19961030, end: 19970115
  2. MYNOCINE [Concomitant]
     Dates: start: 19960410, end: 19960710
  3. AMODEX [Concomitant]
     Route: 048
  4. SOLU-MEDROL [Concomitant]
     Route: 048
  5. ANTIBIOTICS NOS [Concomitant]
     Indication: SINUSITIS
     Dates: start: 19970108

REACTIONS (8)
  - ABDOMINAL PAIN [None]
  - ATAXIA [None]
  - BALANCE DISORDER [None]
  - HEADACHE [None]
  - INTRACRANIAL PRESSURE INCREASED [None]
  - SINUSITIS [None]
  - VERTIGO [None]
  - VISUAL DISTURBANCE [None]
